FAERS Safety Report 9444534 (Version 1)
Quarter: 2013Q3

REPORT INFORMATION
  Report Type: Spontaneous
  Country: US (occurrence: None)
  Receive Date: 20130806
  Receipt Date: 20130806
  Transmission Date: 20140515
  Serious: Yes (Life-Threatening, Hospitalization, Disabling)
  Sender: FDA-Public Use
  Company Number: None

PATIENT
  Age: 37 Year
  Sex: Female
  Weight: 57.61 kg

DRUGS (1)
  1. MINOXIDIL [Suspect]
     Indication: ALOPECIA
     Dosage: 2%  TWICE DAILY  APPLIED TO A SURFACE, USUALLY THE SKIN
     Dates: start: 20130601, end: 20130714

REACTIONS (6)
  - Heart rate increased [None]
  - Chest pain [None]
  - Electrocardiogram abnormal [None]
  - Mitral valve prolapse [None]
  - Tricuspid valve incompetence [None]
  - Mitral valve incompetence [None]
